FAERS Safety Report 4293822-1 (Version None)
Quarter: 2004Q1

REPORT INFORMATION
  Report Type: 
  Country: None (occurrence: None)
  Receive Date: 20040210
  Receipt Date: 20040128
  Transmission Date: 20041129
  Serious: Yes (Hospitalization)
  Sender: FDA-Public Use
  Company Number: 2004005892

PATIENT
  Age: 58 Year
  Sex: Female
  Weight: 85 kg

DRUGS (1)
  1. ZIPRASIDONE (CAPS) (ZIPRASIDONE) [Suspect]
     Indication: BIPOLAR I DISORDER
     Dosage: 60 MG DAILY, ORAL
     Route: 048
     Dates: start: 20031110, end: 20031125

REACTIONS (2)
  - DYSKINESIA [None]
  - RASH VESICULAR [None]
